FAERS Safety Report 25643145 (Version 1)
Quarter: 2025Q3

REPORT INFORMATION
  Report Type: Spontaneous
  Country: US (occurrence: US)
  Receive Date: 20250805
  Receipt Date: 20250805
  Transmission Date: 20251020
  Serious: Yes (Other)
  Sender: MERCK SHARP & DOHME LLC
  Company Number: US-009507513-2313825

PATIENT
  Sex: Female

DRUGS (3)
  1. KEYTRUDA [Suspect]
     Active Substance: PEMBROLIZUMAB
     Indication: Neuroendocrine carcinoma of the skin
     Dosage: 4 INFUSIONS
     Route: 065
     Dates: start: 202503, end: 20250721
  2. METHOTREXATE [Concomitant]
     Active Substance: METHOTREXATE
  3. OMEPRAZOLE [Concomitant]
     Active Substance: OMEPRAZOLE

REACTIONS (3)
  - Rheumatoid arthritis [Not Recovered/Not Resolved]
  - Rash [Not Recovered/Not Resolved]
  - Constipation [Not Recovered/Not Resolved]

NARRATIVE: CASE EVENT DATE: 20250101
